FAERS Safety Report 15889375 (Version 2)
Quarter: 2019Q1

REPORT INFORMATION
  Report Type: Report from Study
  Country: US (occurrence: US)
  Receive Date: 20190130
  Receipt Date: 20190213
  Transmission Date: 20190417
  Serious: Yes (Hospitalization)
  Sender: FDA-Public Use
  Company Number: US-PFIZER INC-2019040531

PATIENT
  Age: 45 Year
  Sex: Male
  Weight: 68 kg

DRUGS (4)
  1. DIPHENHYDRAMINE. [Concomitant]
     Active Substance: DIPHENHYDRAMINE
     Indication: HYPERSENSITIVITY
     Dosage: UNK, (MG) SINGLE (ONCE)
     Route: 048
     Dates: start: 20190111, end: 20190111
  2. ACETAMINOPHEN. [Concomitant]
     Active Substance: ACETAMINOPHEN
     Indication: PAIN
     Dosage: UNK, (MG) SINGLE (ONCE)
     Route: 048
     Dates: start: 20190111, end: 20190111
  3. AVELUMAB [Suspect]
     Active Substance: AVELUMAB
     Indication: RENAL CELL CARCINOMA
     Dosage: 10MG/KG CYCLIC (EVERY 2 WEEKS)
     Route: 042
     Dates: start: 20170811, end: 20190111
  4. INLYTA [Suspect]
     Active Substance: AXITINIB
     Indication: RENAL CELL CARCINOMA
     Dosage: 2X/DAY (TWICE A DAY CONTINOUS (10 MG))
     Route: 048
     Dates: start: 20170811, end: 20190121

REACTIONS (1)
  - Small intestinal obstruction [Recovered/Resolved]

NARRATIVE: CASE EVENT DATE: 20190125
